FAERS Safety Report 10037684 (Version 1)
Quarter: 2014Q1

REPORT INFORMATION
  Report Type: Spontaneous
  Country: US (occurrence: None)
  Receive Date: 20140324
  Receipt Date: 20140324
  Transmission Date: 20141002
  Serious: Yes (Other)
  Sender: FDA-Public Use
  Company Number: DEP_01848_2014

PATIENT
  Age: 86 Year
  Sex: Male
  Weight: 91.63 kg

DRUGS (12)
  1. GRALISE [Suspect]
     Indication: RESTLESS LEGS SYNDROME
     Route: 048
     Dates: start: 20140103, end: 20140128
  2. GRALISE [Suspect]
     Indication: OFF LABEL USE
     Route: 048
     Dates: start: 20140103, end: 20140128
  3. SPIRIVA (UNKNOWN) [Concomitant]
  4. ATROVENT (UNKNOWN)? [Concomitant]
  5. COUMADIN /0014802/ (UNKNOWN) [Concomitant]
  6. ZETIA (UNKNOWN) [Concomitant]
  7. SINGULAIR (UNKNOW) [Concomitant]
  8. FLOMAX /00889901/ (UNKNOWN) [Concomitant]
  9. ASTEPRO (UNKNOWN) [Concomitant]
  10. ENALAPRIL (UNKNOWN) [Concomitant]
  11. METOPROLOL (UNKNOWN) [Concomitant]
  12. ASPIRIN (UNKNOWN) [Concomitant]

REACTIONS (11)
  - Weight increased [None]
  - Dyspnoea [None]
  - Arthropathy [None]
  - Back pain [None]
  - Fatigue [None]
  - Feeling abnormal [None]
  - Mental disorder [None]
  - Muscle spasms [None]
  - Sleep disorder [None]
  - Swelling [None]
  - Pain in extremity [None]
